FAERS Safety Report 9563170 (Version 1)
Quarter: 2013Q3

REPORT INFORMATION
  Report Type: Spontaneous
  Country: US (occurrence: US)
  Receive Date: 20130927
  Receipt Date: 20130927
  Transmission Date: 20140515
  Serious: No
  Sender: FDA-Public Use
  Company Number: US-BRISTOL-MYERS SQUIBB COMPANY-18770610

PATIENT
  Age: 70 Year
  Sex: Male
  Weight: 79.36 kg

DRUGS (5)
  1. BYDUREON [Suspect]
  2. METFORMIN HCL [Suspect]
     Route: 048
  3. ONGLYZA TABS [Suspect]
  4. LANTUS [Suspect]
  5. INSULIN [Suspect]
     Dosage: 1DF:10UNITS
     Route: 058

REACTIONS (5)
  - Injection site nodule [Unknown]
  - Injection site haemorrhage [Unknown]
  - Injection site pruritus [Unknown]
  - Injection site pain [Unknown]
  - Blood glucose fluctuation [Recovering/Resolving]
